FAERS Safety Report 5558285-4 (Version None)
Quarter: 2007Q4

REPORT INFORMATION
  Report Type: 
  Country: None (occurrence: None)
  Receive Date: 20071214
  Receipt Date: 20071204
  Transmission Date: 20080405
  Serious: Yes (Disabling, Other)
  Sender: FDA-Public Use
  Company Number: AU-PFIZER INC-2007097704

PATIENT
  Sex: Male
  Weight: 118 kg

DRUGS (15)
  1. LYRICA [Suspect]
     Indication: NEURALGIA
     Route: 048
     Dates: start: 20071112, end: 20071116
  2. ACTOS [Concomitant]
  3. ALLOPURINOL [Concomitant]
  4. AMARYL [Concomitant]
  5. AVAPRO [Concomitant]
  6. CLOPIDOGREL [Concomitant]
  7. PANAMAX [Concomitant]
  8. ACETAMINOPHEN W/ CODEINE [Concomitant]
  9. FRUSEMIDE [Concomitant]
  10. LEXAPRO [Concomitant]
  11. NEXIUM [Concomitant]
  12. NOVOLOG MIX 70/30 [Concomitant]
  13. OXAZEPAM [Concomitant]
  14. OXYCONTIN [Concomitant]
  15. VYTORIN [Concomitant]

REACTIONS (2)
  - ATHETOSIS [None]
  - EMOTIONAL DISTRESS [None]
